FAERS Safety Report 8143332-6 (Version None)
Quarter: 2012Q1

REPORT INFORMATION
  Report Type: 
  Country: None (occurrence: None)
  Receive Date: 20120217
  Receipt Date: 20120214
  Transmission Date: 20120608
  Serious: Yes (Congenital Anomaly, Other)
  Sender: FDA-Public Use
  Company Number: US-PFIZER INC-2011262804

PATIENT
  Sex: Male
  Weight: 3.3 kg

DRUGS (4)
  1. MULTI-VITAMINS [Concomitant]
     Dosage: UNK
     Route: 064
  2. ZOLOFT [Suspect]
     Dosage: 50 MG, 1X/DAY
     Route: 064
  3. PROZAC [Concomitant]
     Indication: DEPRESSION
     Dosage: UNK
     Route: 064
  4. ZOLOFT [Suspect]
     Indication: DEPRESSION
     Dosage: 150 MG, UNK
     Route: 064
     Dates: start: 19951229

REACTIONS (4)
  - CRYPTORCHISM [None]
  - TALIPES [None]
  - TIBIAL TORSION [None]
  - MATERNAL EXPOSURE TIMING UNSPECIFIED [None]
